FAERS Safety Report 25676692 (Version 3)
Quarter: 2025Q3

REPORT INFORMATION
  Report Type: Report from Study
  Country: US (occurrence: US)
  Receive Date: 20250813
  Receipt Date: 20250826
  Transmission Date: 20251020
  Serious: Yes (Hospitalization)
  Sender: SANOFI AVENTIS
  Company Number: US-SA-2025SA237940

PATIENT
  Age: 83 Year
  Sex: Female
  Weight: 56.69 kg

DRUGS (20)
  1. DUPILUMAB [Suspect]
     Active Substance: DUPILUMAB
     Indication: Neurodermatitis
     Route: 058
     Dates: start: 20250522, end: 20250522
  2. DUPILUMAB [Suspect]
     Active Substance: DUPILUMAB
     Dosage: 300 MG, QOW
     Route: 058
     Dates: start: 202506
  3. ALBUTEROL SULFATE [Concomitant]
     Active Substance: ALBUTEROL SULFATE
  4. TRELEGY ELLIPTA [Concomitant]
     Active Substance: FLUTICASONE FUROATE\UMECLIDINIUM BROMIDE\VILANTEROL TRIFENATATE
  5. SPIRONOLACTONE [Concomitant]
     Active Substance: SPIRONOLACTONE
  6. FUROSEMIDE [Concomitant]
     Active Substance: FUROSEMIDE
  7. METOPROLOL SUCCINATE [Concomitant]
     Active Substance: METOPROLOL SUCCINATE
  8. VALSARTAN [Concomitant]
     Active Substance: VALSARTAN
  9. RIVAROXABAN [Concomitant]
     Active Substance: RIVAROXABAN
  10. DULOXETINE HYDROCHLORIDE [Concomitant]
     Active Substance: DULOXETINE HYDROCHLORIDE
  11. ATORVASTATIN [Concomitant]
     Active Substance: ATORVASTATIN
  12. CLOBETASOL [Concomitant]
     Active Substance: CLOBETASOL
  13. ESZOPICLONE [Concomitant]
     Active Substance: ESZOPICLONE
  14. DULOXETINE [Concomitant]
     Active Substance: DULOXETINE
  15. METOPROLOL [Concomitant]
     Active Substance: METOPROLOL
  16. XARELTO [Concomitant]
     Active Substance: RIVAROXABAN
  17. FERROUS SULFATE [Concomitant]
     Active Substance: FERROUS SULFATE
  18. ASPIRIN [Concomitant]
     Active Substance: ASPIRIN
  19. CYANOCOBALAMIN [Concomitant]
     Active Substance: CYANOCOBALAMIN
  20. ATORVASTATIN CALCIUM [Concomitant]
     Active Substance: ATORVASTATIN CALCIUM

REACTIONS (3)
  - Fall [Unknown]
  - Rib fracture [Unknown]
  - Lower limb fracture [Unknown]

NARRATIVE: CASE EVENT DATE: 20250101
